FAERS Safety Report 25777832 (Version 1)
Quarter: 2025Q3

REPORT INFORMATION
  Report Type: Spontaneous
  Country: US (occurrence: US)
  Receive Date: 20250909
  Receipt Date: 20250909
  Transmission Date: 20251021
  Serious: No
  Sender: COSETTE PHARMACEUTICALS INC
  Company Number: US-COSETTE-CP2025US000867

PATIENT
  Sex: Female

DRUGS (3)
  1. HYDROCORTISONE VALERATE [Suspect]
     Active Substance: HYDROCORTISONE VALERATE
     Indication: Rash
     Route: 065
  2. ACRIVASTINE [Concomitant]
     Active Substance: ACRIVASTINE
     Indication: Rash
     Route: 065
  3. PREDNISONE [Concomitant]
     Active Substance: PREDNISONE
     Indication: Rash
     Route: 065

REACTIONS (1)
  - Drug ineffective [Unknown]
